FAERS Safety Report 15441771 (Version 3)
Quarter: 2018Q4

REPORT INFORMATION
  Report Type: Spontaneous
  Country: GB (occurrence: GB)
  Receive Date: 20180928
  Receipt Date: 20181116
  Transmission Date: 20190204
  Serious: Yes (Death)
  Sender: FDA-Public Use
  Company Number: GB-LPDUSPRD-20181755

PATIENT
  Age: 90 Year
  Sex: Male

DRUGS (2)
  1. CO-AMOXICLAV [Concomitant]
     Active Substance: AMOXICILLIN\CLAVULANATE POTASSIUM
     Dosage: 625
     Route: 048
     Dates: start: 20180726, end: 20180801
  2. FERINJECT [Suspect]
     Active Substance: FERRIC CARBOXYMALTOSE
     Dosage: 1 GM
     Route: 041
     Dates: start: 20180801, end: 20180801

REACTIONS (7)
  - Vasodilatation [Fatal]
  - Ischaemia [Fatal]
  - Hypotension [Fatal]
  - Hypoperfusion [Fatal]
  - Cardiac arrest [Fatal]
  - Circulatory collapse [Fatal]
  - Loss of consciousness [Fatal]

NARRATIVE: CASE EVENT DATE: 20180801
